FAERS Safety Report 5591699-5 (Version None)
Quarter: 2008Q1

REPORT INFORMATION
  Report Type: 
  Country: None (occurrence: None)
  Receive Date: 20080115
  Receipt Date: 20080104
  Transmission Date: 20080703
  Serious: Yes (Other)
  Sender: FDA-Public Use
  Company Number: US-MERCK-0708USA00149

PATIENT
  Age: 54 Year
  Sex: Female

DRUGS (1)
  1. FOSAMAX [Suspect]
     Indication: OSTEOPOROSIS
     Route: 048
     Dates: start: 20020201, end: 20061001

REACTIONS (6)
  - ANXIETY [None]
  - DEPRESSION [None]
  - DYSPHAGIA [None]
  - FUNGAL INFECTION [None]
  - OSTEOMYELITIS [None]
  - OSTEONECROSIS [None]
